FAERS Safety Report 17620817 (Version 3)
Quarter: 2021Q2

REPORT INFORMATION
  Report Type: Spontaneous
  Country: US (occurrence: US)
  Receive Date: 20200403
  Receipt Date: 20210429
  Transmission Date: 20210716
  Serious: Yes (Hospitalization, Other)
  Sender: FDA-Public Use
  Company Number: US-AMGEN INC.-USASP2020052914

PATIENT
  Age: 64 Year
  Sex: Female

DRUGS (8)
  1. AIMOVIG [Suspect]
     Active Substance: ERENUMAB-AOOE
     Indication: MIGRAINE PROPHYLAXIS
     Dosage: 70 MILLIGRAM, QMO
     Route: 065
     Dates: start: 202001, end: 202009
  2. COVID?19 VACCINE NOS. [Concomitant]
     Active Substance: COVID-19 VACCINE NOS
     Dosage: UNK
     Route: 065
     Dates: start: 20210324
  3. KEPPRA [Suspect]
     Active Substance: LEVETIRACETAM
     Indication: SEIZURE
     Dosage: 250 MILLIGRAM
     Route: 065
     Dates: start: 2021
  4. SOTALOL. [Concomitant]
     Active Substance: SOTALOL
     Indication: CARDIAC DISORDER
     Dosage: 80 MILLIGRAM, QD
  5. DILTIAZEM. [Concomitant]
     Active Substance: DILTIAZEM
     Indication: BLOOD PRESSURE ABNORMAL
     Dosage: 120 MILLIGRAM, QD
  6. COVID?19 VACCINE NOS. [Concomitant]
     Active Substance: COVID-19 VACCINE NOS
     Indication: COVID-19 IMMUNISATION
     Dosage: UNK
     Route: 065
     Dates: start: 20210303
  7. AIMOVIG [Suspect]
     Active Substance: ERENUMAB-AOOE
     Dosage: 140 MILLIGRAM, QMO
     Route: 065
     Dates: start: 202010
  8. TOPIRAMATE. [Concomitant]
     Active Substance: TOPIRAMATE
     Dosage: 50 MILLIGRAM, QD

REACTIONS (13)
  - Visual impairment [Recovered/Resolved]
  - Generalised tonic-clonic seizure [Unknown]
  - Therapeutic response shortened [Unknown]
  - Therapeutic response unexpected [Unknown]
  - Blepharospasm [Recovering/Resolving]
  - Disturbance in attention [Recovering/Resolving]
  - Seizure [Unknown]
  - Disorientation [Recovering/Resolving]
  - Transient ischaemic attack [Unknown]
  - Nausea [Recovering/Resolving]
  - Dizziness [Recovered/Resolved]
  - COVID-19 [Unknown]
  - Antibiotic therapy [Unknown]

NARRATIVE: CASE EVENT DATE: 202001
